FAERS Safety Report 8177573-9 (Version None)
Quarter: 2012Q1

REPORT INFORMATION
  Report Type: 
  Country: None (occurrence: None)
  Receive Date: 20120301
  Receipt Date: 20120216
  Transmission Date: 20120608
  Serious: Yes (Hospitalization)
  Sender: FDA-Public Use
  Company Number: PHHY2012DE014410

PATIENT
  Sex: Female

DRUGS (6)
  1. HYDROCHLOROTHIAZIDE [Suspect]
     Route: 048
  2. ASPIRIN [Concomitant]
  3. AGGRENOX [Concomitant]
  4. DIOVAN [Suspect]
     Route: 048
  5. METOPROLOL SUCCINATE [Concomitant]
  6. PRAVASTATIN [Concomitant]

REACTIONS (2)
  - HAEMATOMA [None]
  - BODY TEMPERATURE DECREASED [None]
